FAERS Safety Report 6681583-8 (Version None)
Quarter: 2010Q2

REPORT INFORMATION
  Report Type: 
  Country: None (occurrence: None)
  Receive Date: 20100414
  Receipt Date: 20100407
  Transmission Date: 20101027
  Serious: Yes (Life-Threatening)
  Sender: FDA-Public Use
  Company Number: GB-PURDUE-GBR-2010-0006387

PATIENT
  Age: 7 Year
  Sex: Male
  Weight: 29.5 kg

DRUGS (12)
  1. NON-PMN MORPHINE SULFATE [Suspect]
     Indication: ANALGESIC THERAPY
     Dosage: 3 MG, UNK
     Route: 042
  2. ADRENALINE                         /00003901/ [Suspect]
     Indication: ANALGESIC THERAPY
     Route: 065
  3. ATRACURIUM BESYLATE [Suspect]
     Indication: ANALGESIC THERAPY
     Dosage: 20 MG, UNK
     Route: 042
  4. BUPIVACAINE HCL [Suspect]
     Indication: ANALGESIC THERAPY
     Dosage: 8 ML, UNK
     Route: 065
  5. DESFLURANE [Suspect]
     Indication: ANALGESIC THERAPY
     Route: 065
  6. DEXAMETHASONE [Suspect]
     Indication: ANALGESIC THERAPY
     Dosage: 8 MG, UNK
     Route: 042
  7. FENTANYL [Suspect]
     Indication: ANALGESIC THERAPY
     Dosage: .05 MG, UNK
     Route: 042
  8. NITROUS OXIDE [Suspect]
     Indication: ANALGESIC THERAPY
     Dosage: UNK
     Route: 065
  9. ONDANSETRON [Suspect]
     Indication: ANALGESIC THERAPY
     Dosage: 3 MG, UNK
     Route: 042
  10. PARACETAMOL [Suspect]
     Indication: ANALGESIC THERAPY
     Dosage: 600 MG, UNK
     Route: 042
  11. PROPOFOL [Suspect]
     Indication: ANALGESIC THERAPY
     Dosage: 100 MG, UNK
     Route: 042
  12. OXYGEN [Concomitant]

REACTIONS (3)
  - ASTHENIA [None]
  - BLOOD PRESSURE SYSTOLIC INCREASED [None]
  - RESPIRATORY DISTRESS [None]
